FAERS Safety Report 5469980-X (Version None)
Quarter: 2007Q3

REPORT INFORMATION
  Report Type: 
  Country: None (occurrence: None)
  Receive Date: 20070927
  Receipt Date: 20070916
  Transmission Date: 20080115
  Serious: Yes (Other)
  Sender: FDA-Public Use
  Company Number: US-PFIZER INC-2007077829

PATIENT
  Sex: Female
  Weight: 54.4 kg

DRUGS (5)
  1. CHANTIX [Suspect]
     Indication: SMOKING CESSATION THERAPY
  2. ZOFRAN [Concomitant]
     Indication: NAUSEA
  3. PREVACID [Concomitant]
     Indication: HYPERCHLORHYDRIA
  4. STOOL SOFTENER [Concomitant]
  5. BACTRIM [Concomitant]
     Indication: PNEUMONIA VIRAL

REACTIONS (3)
  - NAUSEA [None]
  - NON-HODGKIN'S LYMPHOMA [None]
  - VOMITING [None]
